FAERS Safety Report 5152127-7 (Version None)
Quarter: 2006Q4

REPORT INFORMATION
  Report Type: 
  Country: None (occurrence: None)
  Receive Date: 20061114
  Receipt Date: 20061114
  Transmission Date: 20070319
  Serious: Yes (Other)
  Sender: FDA-Public Use
  Company Number: None

PATIENT
  Age: 33 Year
  Sex: Female
  Weight: 76.2043 kg

DRUGS (1)
  1. CYMBALTA [Suspect]
     Indication: FIBROMYALGIA
     Dosage: 30MG 1 H.S. PO
     Route: 048

REACTIONS (8)
  - DRUG DOSE OMISSION [None]
  - FEELING ABNORMAL [None]
  - HALLUCINATION [None]
  - MALAISE [None]
  - MOVEMENT DISORDER [None]
  - NAUSEA [None]
  - PARAESTHESIA [None]
  - TREMOR [None]
